FAERS Safety Report 13945664 (Version 1)
Quarter: 2017Q3

REPORT INFORMATION
  Report Type: Spontaneous
  Country: US (occurrence: US)
  Receive Date: 20170907
  Receipt Date: 20170907
  Transmission Date: 20171128
  Serious: No
  Sender: FDA-Public Use
  Company Number: US-TAKEDA-2017TUS018215

PATIENT
  Sex: Male

DRUGS (3)
  1. ROZEREM [Suspect]
     Active Substance: RAMELTEON
     Indication: SLEEP DISORDER
     Dosage: 8 MG, UNK
     Route: 048
  2. ROZEREM [Suspect]
     Active Substance: RAMELTEON
     Dosage: 8 MG, QD
     Route: 048
  3. XANAX [Concomitant]
     Active Substance: ALPRAZOLAM
     Dosage: UNK UNK, BID

REACTIONS (2)
  - Middle insomnia [Not Recovered/Not Resolved]
  - Overdose [Unknown]
